FAERS Safety Report 11932841 (Version 1)
Quarter: 2016Q1

REPORT INFORMATION
  Report Type: Report from Study
  Country: TW (occurrence: TW)
  Receive Date: 20160120
  Receipt Date: 20160120
  Transmission Date: 20160526
  Serious: Yes (Other)
  Sender: FDA-Public Use
  Company Number: PHHO2016TW000952

PATIENT
  Age: 26 Year
  Sex: Male
  Weight: 110.3 kg

DRUGS (1)
  1. AIN457 [Suspect]
     Active Substance: SECUKINUMAB
     Indication: PSORIASIS
     Dosage: UNK
     Route: 058
     Dates: start: 20140625, end: 20151214

REACTIONS (1)
  - Non-alcoholic fatty liver [Not Recovered/Not Resolved]

NARRATIVE: CASE EVENT DATE: 20151216
